FAERS Safety Report 4321227-3 (Version None)
Quarter: 2004Q1

REPORT INFORMATION
  Report Type: 
  Country: None (occurrence: None)
  Receive Date: 20040323
  Receipt Date: 20040227
  Transmission Date: 20041129
  Serious: Yes (Life-Threatening, Hospitalization)
  Sender: FDA-Public Use
  Company Number: PHRM2004FR01008

PATIENT
  Age: 14 Year
  Sex: Female

DRUGS (7)
  1. AREDIA [Suspect]
     Indication: OSTEOPOROSIS PROPHYLAXIS
     Dates: start: 20040216, end: 20040216
  2. CORTANCYL [Concomitant]
     Indication: ARTHRITIS
     Dates: start: 19990101
  3. ENBREL ^WYETH PHARMA^ [Concomitant]
  4. APRANAX [Concomitant]
  5. ACTISKENAN [Concomitant]
  6. MOPRAL [Concomitant]
  7. METHOTREXATE [Concomitant]

REACTIONS (18)
  - AREFLEXIA [None]
  - BRAIN OEDEMA [None]
  - C-REACTIVE PROTEIN INCREASED [None]
  - COMA [None]
  - DEPRESSED LEVEL OF CONSCIOUSNESS [None]
  - HEADACHE [None]
  - HEART RATE INCREASED [None]
  - HYPERHIDROSIS [None]
  - HYPOCALCAEMIA [None]
  - HYPOKALAEMIA [None]
  - HYPONATRAEMIA [None]
  - HYPOTENSION [None]
  - INFLAMMATION [None]
  - LEUKOCYTOSIS [None]
  - MUSCLE RIGIDITY [None]
  - PHOTOPHOBIA [None]
  - PYREXIA [None]
  - VOMITING [None]
